FAERS Safety Report 22007167 (Version 2)
Quarter: 2023Q1

REPORT INFORMATION
  Report Type: Spontaneous
  Country: KZ (occurrence: KZ)
  Receive Date: 20230217
  Receipt Date: 20230330
  Transmission Date: 20230418
  Serious: Yes (Death, Hospitalization, Other)
  Sender: FDA-Public Use
  Company Number: KZ-BIOMARINAP-KZ-2023-148617

PATIENT

DRUGS (10)
  1. NAGLAZYME [Suspect]
     Active Substance: GALSULFASE
     Indication: Mucopolysaccharidosis VI
     Dosage: 1 MILLIGRAM/KILOGRAM
     Route: 042
     Dates: start: 201808
  2. Levozin [Concomitant]
     Indication: Product used for unknown indication
     Dosage: 250 MILLIGRAM, QD
     Route: 048
  3. URSODEX [Concomitant]
     Indication: Product used for unknown indication
     Dosage: 250 MILLIGRAM, QD
     Route: 048
  4. FENOTEROL HYDROBROMIDE\IPRATROPIUM BROMIDE [Concomitant]
     Active Substance: FENOTEROL HYDROBROMIDE\IPRATROPIUM BROMIDE
     Indication: Product used for unknown indication
     Dosage: 0.7 MILLILITER, BID
  5. FENOTEROL HYDROBROMIDE\IPRATROPIUM BROMIDE [Concomitant]
     Active Substance: FENOTEROL HYDROBROMIDE\IPRATROPIUM BROMIDE
     Dosage: 0.7 MILLILITER, QD
  6. SINEGRA [Concomitant]
     Indication: Product used for unknown indication
     Dosage: 12.5 MILLIGRAM, BID
     Route: 048
  7. SINEGRA [Concomitant]
     Dosage: 10 MILLIGRAM, QD
     Route: 048
  8. AMIODARONE HYDROCHLORIDE [Concomitant]
     Active Substance: AMIODARONE HYDROCHLORIDE
     Indication: Product used for unknown indication
     Dosage: 12.5 MILLIGRAM, QD
     Route: 048
  9. DOPAMINE [Concomitant]
     Active Substance: DOPAMINE HYDROCHLORIDE
     Indication: Product used for unknown indication
     Dosage: 2.4 MILLILITER
     Route: 042
  10. DEXAMETHASONE [Concomitant]
     Active Substance: DEXAMETHASONE
     Indication: Product used for unknown indication
     Dosage: 4 MILLIGRAM, BID
     Route: 030

REACTIONS (26)
  - Cardiopulmonary failure [Fatal]
  - Pulmonary hypertension [Unknown]
  - Pulmonary fibrosis [Unknown]
  - Tracheal stenosis [Unknown]
  - Anaemia [Unknown]
  - Tracheomalacia [Unknown]
  - Respiratory disorder [Unknown]
  - Respiratory failure [Unknown]
  - Hypertrophic cardiomyopathy [Unknown]
  - Mitral valve incompetence [Unknown]
  - Tricuspid valve incompetence [Unknown]
  - Brain oedema [Unknown]
  - Brain hypoxia [Unknown]
  - Pneumonia [Unknown]
  - Peritonsillar abscess [Unknown]
  - Oxygen saturation decreased [Unknown]
  - Spinal deformity [Unknown]
  - Limb deformity [Unknown]
  - Cough [Unknown]
  - Body temperature increased [Unknown]
  - Respiratory distress [Unknown]
  - Dyspnoea at rest [Unknown]
  - Anxiety [Unknown]
  - Decreased appetite [Unknown]
  - Dyspnoea exertional [Unknown]
  - Gait disturbance [Unknown]

NARRATIVE: CASE EVENT DATE: 20200101
